FAERS Safety Report 4382627-9 (Version None)
Quarter: 2004Q2

REPORT INFORMATION
  Report Type: 
  Country: None (occurrence: None)
  Receive Date: 20040617
  Receipt Date: 20040604
  Transmission Date: 20050107
  Serious: Yes (Hospitalization)
  Sender: FDA-Public Use
  Company Number: 8006463

PATIENT
  Age: 60 Year
  Sex: Female

DRUGS (4)
  1. KEPPRA [Suspect]
     Indication: EPILEPSY
     Dosage: 2000 MG/ D PO
     Route: 048
  2. DI-HYDAN [Concomitant]
  3. RIVOTRIL [Concomitant]
  4. GARDENAL [Concomitant]

REACTIONS (1)
  - STATUS EPILEPTICUS [None]
